FAERS Safety Report 19241964 (Version 2)
Quarter: 2021Q2

REPORT INFORMATION
  Report Type: Spontaneous
  Country: FR (occurrence: FR)
  Receive Date: 20210511
  Receipt Date: 20210525
  Transmission Date: 20210717
  Serious: Yes (Life-Threatening, Hospitalization, Other)
  Sender: FDA-Public Use
  Company Number: FR-LUPIN PHARMACEUTICALS INC.-2021-06564

PATIENT
  Age: 17 Year

DRUGS (2)
  1. AMLODIPINE [Suspect]
     Active Substance: AMLODIPINE BESYLATE
     Indication: PRODUCT USED FOR UNKNOWN INDICATION
     Dosage: 90 DOSAGE FORM,5MG CAPSULES(BOX CONTAINING 90 CAPSULES; SUPPOSED DOSE/WEIGHT INGESTED IS 6.8 MG/KG)
     Route: 048
  2. ATENOLOL. [Suspect]
     Active Substance: ATENOLOL
     Indication: PRODUCT USED FOR UNKNOWN INDICATION
     Dosage: 90 DOSAGE FORM,50MG TABLETS (BOX CONTAINING 90 TABLETS; SUPPOSED DOSE/WEIGHT INGESTED IS 68.2 MG/KG)
     Route: 048

REACTIONS (7)
  - Vasoplegia syndrome [Recovered/Resolved]
  - Cardiogenic shock [Recovered/Resolved]
  - Hypotension [Recovered/Resolved]
  - Somnolence [Recovered/Resolved]
  - Toxicity to various agents [Unknown]
  - Atrioventricular block first degree [Recovered/Resolved]
  - Intentional overdose [Unknown]
